FAERS Safety Report 5262422-9 (Version None)
Quarter: 2007Q1

REPORT INFORMATION
  Report Type: 
  Country: None (occurrence: None)
  Receive Date: 20061219
  Receipt Date: 20060609
  Transmission Date: 20070707
  Serious: Yes (Other)
  Sender: FDA-Public Use
  Company Number: PHEH2006US02963

PATIENT
  Age: 43 Year
  Sex: Female

DRUGS (2)
  1. SANDOSTATIN [Suspect]
     Indication: PANCREATITIS CHRONIC
     Dosage: INJECTION NOS
     Route: 042
     Dates: start: 20060201, end: 20060301
  2. SANDOSTATIN LAR [Suspect]
     Dosage: INJECTION NOS
     Route: 042
     Dates: start: 20060301, end: 20060401

REACTIONS (5)
  - ABDOMINAL PAIN [None]
  - ARTHRALGIA [None]
  - DYSPNOEA [None]
  - NAUSEA [None]
  - PANCREATITIS [None]
